FAERS Safety Report 7611599-6 (Version None)
Quarter: 2011Q3

REPORT INFORMATION
  Report Type: 
  Country: None (occurrence: None)
  Receive Date: 20110715
  Receipt Date: 20110704
  Transmission Date: 20111222
  Serious: Yes (Life-Threatening)
  Sender: FDA-Public Use
  Company Number: FR-GLAXOSMITHKLINE-B0730534A

PATIENT
  Sex: Female
  Weight: 59 kg

DRUGS (6)
  1. CLASTOBAN [Suspect]
     Indication: METASTASIS
     Dosage: 1600MG PER DAY
     Route: 048
     Dates: start: 20110216, end: 20110601
  2. ZOFENOPRIL [Suspect]
     Indication: HYPERTENSION
     Route: 048
     Dates: end: 20110528
  3. CRESTOR [Suspect]
     Indication: DYSLIPIDAEMIA
     Route: 048
     Dates: end: 20110528
  4. ONDANSERTRON HYDROCHLORIDE [Suspect]
     Dosage: 8MG TWICE PER DAY
     Route: 042
     Dates: start: 20110216, end: 20110511
  5. TAXOTERE [Suspect]
     Indication: BREAST CANCER
     Dosage: 120MG CYCLIC
     Route: 042
     Dates: start: 20110216, end: 20110511
  6. SOLU-MEDROL [Suspect]
     Dosage: 40MG CYCLIC
     Route: 042
     Dates: start: 20110216, end: 20110511

REACTIONS (4)
  - ABDOMINAL PAIN [None]
  - PANCREATITIS NECROTISING [None]
  - NAUSEA [None]
  - VOMITING [None]
